FAERS Safety Report 4890513-0 (Version None)
Quarter: 2006Q1

REPORT INFORMATION
  Report Type: 
  Country: None (occurrence: None)
  Receive Date: 20060123
  Receipt Date: 20060112
  Transmission Date: 20060701
  Serious: Yes (Hospitalization, Other)
  Sender: FDA-Public Use
  Company Number: 2006-01-0993

PATIENT
  Age: 42 Year
  Sex: Female

DRUGS (12)
  1. LORATADINE [Suspect]
     Dosage: ORAL
     Route: 048
     Dates: end: 20051001
  2. LEXAPRO [Suspect]
     Indication: ANXIETY
     Dosage: SEE IMAGE
     Dates: start: 20050501, end: 20050701
  3. LEXAPRO [Suspect]
     Indication: DEPRESSION
     Dosage: SEE IMAGE
     Dates: start: 20050501, end: 20050701
  4. LEXAPRO [Suspect]
     Indication: ANXIETY
     Dosage: SEE IMAGE
     Dates: start: 20051005, end: 20051001
  5. LEXAPRO [Suspect]
     Indication: DEPRESSION
     Dosage: SEE IMAGE
     Dates: start: 20051005, end: 20051001
  6. LEXAPRO [Suspect]
     Indication: ANXIETY
     Dosage: SEE IMAGE
     Dates: start: 20050701, end: 20051004
  7. LEXAPRO [Suspect]
     Indication: DEPRESSION
     Dosage: SEE IMAGE
     Dates: start: 20050701, end: 20051004
  8. LEXAPRO [Suspect]
     Indication: ANXIETY
     Dosage: SEE IMAGE
     Dates: start: 20051218, end: 20051223
  9. LEXAPRO [Suspect]
     Indication: DEPRESSION
     Dosage: SEE IMAGE
     Dates: start: 20051218, end: 20051223
  10. PRILOSEC [Concomitant]
  11. NIACIN [Concomitant]
  12. CALCIUM GLUCONATE [Concomitant]

REACTIONS (4)
  - DEPRESSION [None]
  - DRY EYE [None]
  - EYE IRRITATION [None]
  - MUSCLE SPASMS [None]
